FAERS Safety Report 7424510 (Version 2)
Quarter: 2014Q4

REPORT INFORMATION
  Report Type: Spontaneous
  Country: NL (occurrence: NL)
  Receive Date: 20100618
  Receipt Date: 20141127
  Transmission Date: 20150529
  Serious: Yes (Hospitalization, Other)
  Sender: FDA-Public Use
  Company Number: NL-JNJFOC-20100605193

PATIENT
  Age: 7 Year
  Weight: 22 kg

DRUGS (1)
  1. LOPERAMIDE [Suspect]
     Active Substance: LOPERAMIDE
     Indication: DIARRHOEA
     Route: 048

REACTIONS (8)
  - Pyrexia [Recovered/Resolved]
  - Faecaloma [Recovered/Resolved]
  - Medication error [Recovered/Resolved]
  - Anuria [Recovered/Resolved]
  - Urinary retention [Recovered/Resolved]
  - Leukocytosis [Recovered/Resolved]
  - Overdose [Recovered/Resolved]
  - Abdominal pain [Recovered/Resolved]
